FAERS Safety Report 5010403-2 (Version None)
Quarter: 2006Q2

REPORT INFORMATION
  Report Type: 
  Country: None (occurrence: None)
  Receive Date: 20060404
  Receipt Date: 20051222
  Transmission Date: 20061013
  Serious: No
  Sender: FDA-Public Use
  Company Number: US200512003829

PATIENT
  Sex: Female

DRUGS (3)
  1. CYMBALTA [Suspect]
     Indication: ANXIETY
     Dosage: SEE IMAGE
     Dates: start: 20041001, end: 20051201
  2. CYMBALTA [Suspect]
     Dates: start: 20041001, end: 20051201
  3. WELLBUTRIN [Concomitant]

REACTIONS (7)
  - CRYING [None]
  - DEPRESSION [None]
  - EMOTIONAL DISORDER [None]
  - FOOD CRAVING [None]
  - PARAESTHESIA [None]
  - TINNITUS [None]
  - TREMOR [None]
